FAERS Safety Report 6208090-0 (Version None)
Quarter: 2009Q2

REPORT INFORMATION
  Report Type: 
  Country: None (occurrence: None)
  Receive Date: 20090529
  Receipt Date: 20090429
  Transmission Date: 20091009
  Serious: No
  Sender: FDA-Public Use
  Company Number: US-KINGPHARMUSA00001-K200900512

PATIENT
  Sex: Female
  Weight: 47.619 kg

DRUGS (3)
  1. FLECTOR [Suspect]
     Indication: BACK PAIN
     Dosage: 1 PATCH, SINGLE
     Route: 061
     Dates: start: 20090416, end: 20090416
  2. DICLOFENAC SODIUM [Suspect]
     Indication: PAIN
     Dosage: UNK
     Route: 061
  3. CATAPRES                           /00171101/ [Concomitant]
     Indication: HYPERTENSION
     Dosage: UNK

REACTIONS (5)
  - ABDOMINAL PAIN UPPER [None]
  - ASTHENIA [None]
  - BLOOD PRESSURE INCREASED [None]
  - MALAISE [None]
  - NAUSEA [None]
